FAERS Safety Report 14475744 (Version 1)
Quarter: 2018Q1

REPORT INFORMATION
  Report Type: Spontaneous
  Country: US (occurrence: US)
  Receive Date: 20180201
  Receipt Date: 20180201
  Transmission Date: 20180509
  Serious: Yes (Hospitalization, Other)
  Sender: FDA-Public Use
  Company Number: US-NOVOPROD-582807

PATIENT
  Age: 58 Year
  Sex: Male
  Weight: 95.69 kg

DRUGS (3)
  1. NOVOLOG MIX 70/30 [Suspect]
     Active Substance: INSULIN ASPART
     Indication: TYPE 2 DIABETES MELLITUS
     Dosage: SLIDING SCALE THREE TIMES A DAY; 14 UNITS AND IS TO INCREASE FOR LUNCH AND DINNER
     Route: 058
  2. LANTUS [Concomitant]
     Active Substance: INSULIN GLARGINE
     Dosage: 32 U, UNK
     Route: 058
     Dates: start: 201801
  3. LANTUS [Concomitant]
     Active Substance: INSULIN GLARGINE
     Indication: TYPE 2 DIABETES MELLITUS
     Dosage: 30 U, UNK
     Route: 058
     Dates: end: 201801

REACTIONS (7)
  - Urinary incontinence [Unknown]
  - Diabetes mellitus inadequate control [Not Recovered/Not Resolved]
  - Hypoglycaemic seizure [Not Recovered/Not Resolved]
  - Anal incontinence [Unknown]
  - Dehydration [Unknown]
  - Hypoglycaemic unconsciousness [Not Recovered/Not Resolved]
  - Hyperglycaemic unconsciousness [Unknown]

NARRATIVE: CASE EVENT DATE: 201801
